FAERS Safety Report 4297361-3 (Version None)
Quarter: 2004Q1

REPORT INFORMATION
  Report Type: 
  Country: None (occurrence: None)
  Receive Date: 20040126
  Receipt Date: 20030915
  Transmission Date: 20041129
  Serious: No
  Sender: FDA-Public Use
  Company Number: USA030947188

PATIENT
  Age: 9 Year
  Sex: Female
  Weight: 32 kg

DRUGS (3)
  1. STRATTERA [Suspect]
     Indication: ATTENTION DEFICIT/HYPERACTIVITY DISORDER
     Dosage: 40 MG
     Dates: start: 20030601
  2. PRILOSOC (OMEPRAZOLE) [Concomitant]
  3. SUCRALFATE [Concomitant]

REACTIONS (7)
  - DECREASED APPETITE [None]
  - DYSPEPSIA [None]
  - FEELING ABNORMAL [None]
  - GROWTH RETARDATION [None]
  - HEADACHE [None]
  - MIDDLE INSOMNIA [None]
  - VOMITING [None]
